FAERS Safety Report 14608427 (Version 5)
Quarter: 2020Q1

REPORT INFORMATION
  Report Type: Spontaneous
  Country: DE (occurrence: DE)
  Receive Date: 20180307
  Receipt Date: 20200124
  Transmission Date: 20200409
  Serious: Yes (Death, Life-Threatening, Hospitalization, Other)
  Sender: FDA-Public Use
  Company Number: DE-ABBVIE-18P-062-2278478-00

PATIENT
  Age: 73 Year
  Sex: Male
  Weight: 98 kg

DRUGS (7)
  1. MAGNO SANOL UNO [Concomitant]
     Indication: MUSCLE SPASMS
     Dates: end: 20180221
  2. SIMVASTATIN. [Concomitant]
     Active Substance: SIMVASTATIN
     Indication: CORONARY ARTERY DISEASE
     Dates: end: 20180221
  3. ASPIRIN. [Concomitant]
     Active Substance: ASPIRIN
     Indication: CORONARY ARTERY DISEASE
     Route: 048
     Dates: end: 20180221
  4. METOPROLOL. [Concomitant]
     Active Substance: METOPROLOL
     Indication: PRODUCT USED FOR UNKNOWN INDICATION
  5. VENCLYXTO [Suspect]
     Active Substance: VENETOCLAX
     Indication: CHRONIC LYMPHOCYTIC LEUKAEMIA
     Route: 048
     Dates: start: 20180220, end: 20180220
  6. FEBUXOSTAT. [Concomitant]
     Active Substance: FEBUXOSTAT
     Indication: PROPHYLAXIS
     Route: 048
     Dates: start: 20180220, end: 20180220
  7. PANTOPRAZOL [Concomitant]
     Active Substance: PANTOPRAZOLE SODIUM
     Indication: PROPHYLAXIS
     Route: 048
     Dates: start: 20180223

REACTIONS (20)
  - Lactic acidosis [Unknown]
  - Hypocalcaemia [Unknown]
  - Septic shock [Unknown]
  - Pyrexia [Unknown]
  - Encephalopathy [Unknown]
  - Abdominal pain upper [Unknown]
  - Infection [Unknown]
  - Blood phosphorus increased [Unknown]
  - Crepitations [Unknown]
  - Oedema peripheral [Unknown]
  - Respiratory failure [Unknown]
  - Hypotension [Unknown]
  - Dyspnoea [Unknown]
  - Pulmonary sepsis [Fatal]
  - Renal function test abnormal [Unknown]
  - General physical health deterioration [Unknown]
  - Atypical pneumonia [Unknown]
  - Chills [Unknown]
  - Tumour lysis syndrome [Fatal]
  - Respiratory fatigue [Unknown]

NARRATIVE: CASE EVENT DATE: 201802
